FAERS Safety Report 17263195 (Version 1)
Quarter: 2020Q1

REPORT INFORMATION
  Report Type: Spontaneous
  Country: US (occurrence: US)
  Receive Date: 20200111
  Receipt Date: 20200111
  Transmission Date: 20200409
  Serious: Yes (Life-Threatening, Hospitalization)
  Sender: FDA-Public Use
  Company Number: None

PATIENT
  Age: 60 Year
  Sex: Female
  Weight: 118.7 kg

DRUGS (1)
  1. HERCEPTIN [Suspect]
     Active Substance: TRASTUZUMAB
     Indication: BREAST CANCER
     Dosage: ?          OTHER FREQUENCY:EVERY 3 WEEKS;?
     Route: 042
     Dates: start: 20190529, end: 20191211

REACTIONS (5)
  - Blood glucose increased [None]
  - Interstitial lung disease [None]
  - Acute respiratory distress syndrome [None]
  - Pulmonary fibrosis [None]
  - Adverse drug reaction [None]

NARRATIVE: CASE EVENT DATE: 20191229
